FAERS Safety Report 14607888 (Version 1)
Quarter: 2018Q1

REPORT INFORMATION
  Report Type: Spontaneous
  Country: US (occurrence: US)
  Receive Date: 20180307
  Receipt Date: 20180307
  Transmission Date: 20180509
  Serious: Yes (Other)
  Sender: FDA-Public Use
  Company Number: US-ASTRAZENECA-2018SE28110

PATIENT

DRUGS (2)
  1. PROTONIX [Interacting]
     Active Substance: PANTOPRAZOLE SODIUM
     Route: 065
  2. CALQUENCE [Suspect]
     Active Substance: ACALABRUTINIB
     Indication: MANTLE CELL LYMPHOMA
     Dosage: UNKNOWN
     Route: 048

REACTIONS (1)
  - Drug interaction [Unknown]
